FAERS Safety Report 15231050 (Version 4)
Quarter: 2018Q3

REPORT INFORMATION
  Report Type: Spontaneous
  Country: CZ (occurrence: CZ)
  Receive Date: 20180802
  Receipt Date: 20180827
  Transmission Date: 20181010
  Serious: No
  Sender: FDA-Public Use
  Company Number: CZ-PFIZER INC-2018223819

PATIENT
  Age: 33 Year
  Sex: Female

DRUGS (1)
  1. INFLIXIMAB [Suspect]
     Active Substance: INFLIXIMAB
     Indication: INTESTINAL ANASTOMOSIS COMPLICATION
     Dosage: STANDARD INDUCTION REGIMEN, 3 DOSES
     Route: 065
     Dates: start: 2001

REACTIONS (1)
  - Hypersensitivity [Unknown]
